FAERS Safety Report 10402976 (Version 3)
Quarter: 2014Q3

REPORT INFORMATION
  Report Type: Spontaneous
  Country: US (occurrence: US)
  Receive Date: 20140822
  Receipt Date: 20140910
  Transmission Date: 20150326
  Serious: Yes (Death, Other)
  Sender: FDA-Public Use
  Company Number: US-ASTRAZENECA-2004UW11672

PATIENT
  Age: 66 Year
  Sex: Female
  Weight: 44.5 kg

DRUGS (15)
  1. JANUVIA [Concomitant]
     Active Substance: SITAGLIPTIN PHOSPHATE
     Indication: DIABETES MELLITUS
  2. GLYBURIDE. [Concomitant]
     Active Substance: GLYBURIDE
  3. DITROPAN [Concomitant]
     Active Substance: OXYBUTYNIN CHLORIDE
     Indication: HYPERTONIC BLADDER
     Dosage: DAILY
  4. PRILOSEC [Suspect]
     Active Substance: OMEPRAZOLE MAGNESIUM
     Route: 048
  5. ACTINAL [Concomitant]
     Dosage: ONCE A WEEK
  6. CELEBREX [Concomitant]
     Active Substance: CELECOXIB
  7. GABAPENTIN. [Concomitant]
     Active Substance: GABAPENTIN
  8. IRESSA [Suspect]
     Active Substance: GEFITINIB
     Indication: NON-SMALL CELL LUNG CANCER
     Route: 048
     Dates: start: 20020916, end: 20110329
  9. NEURONTIN [Concomitant]
     Active Substance: GABAPENTIN
  10. TRIMETHOPRIM. [Concomitant]
     Active Substance: TRIMETHOPRIM
  11. NEXIUM [Suspect]
     Active Substance: ESOMEPRAZOLE MAGNESIUM
     Route: 048
     Dates: start: 20031210
  12. AVANDIA [Concomitant]
     Active Substance: ROSIGLITAZONE MALEATE
  13. MORPHINE (NON AZ PRODUCT) [Suspect]
     Active Substance: MORPHINE
     Indication: ILL-DEFINED DISORDER
     Route: 065
  14. VESICARE [Concomitant]
     Active Substance: SOLIFENACIN SUCCINATE
  15. VICODIN [Concomitant]
     Active Substance: ACETAMINOPHEN\HYDROCODONE BITARTRATE

REACTIONS (14)
  - Lung neoplasm malignant [Fatal]
  - Lung carcinoma cell type unspecified recurrent [Unknown]
  - Adverse drug reaction [Unknown]
  - Dyspnoea [Unknown]
  - Growth of eyelashes [Unknown]
  - Rash generalised [Unknown]
  - Gastrooesophageal reflux disease [Unknown]
  - Weight decreased [Unknown]
  - Drug dose omission [Unknown]
  - Diarrhoea [Unknown]
  - Dysuria [Unknown]
  - Micturition urgency [Unknown]
  - Urinary tract infection [Unknown]
  - Nodule [Unknown]

NARRATIVE: CASE EVENT DATE: 2003
